FAERS Safety Report 9728338 (Version 2)
Quarter: 2013Q4

REPORT INFORMATION
  Report Type: Report from Study
  Country: FR (occurrence: FR)
  Receive Date: 20131204
  Receipt Date: 20131204
  Transmission Date: 20140711
  Serious: Yes (Hospitalization)
  Sender: FDA-Public Use
  Company Number: PHHY2013FR081322

PATIENT
  Age: 71 Year
  Sex: Female

DRUGS (14)
  1. MYCOPHENOLIC ACID [Suspect]
     Indication: RENAL TRANSPLANT
     Dosage: 1440 MG, UNK
     Route: 048
     Dates: start: 20130425, end: 20130727
  2. NEORAL [Suspect]
     Indication: RENAL TRANSPLANT
     Dosage: UNK UKN, UNK
     Dates: end: 20130429
  3. NEORAL [Suspect]
     Dosage: UNK
     Dates: start: 20130429
  4. NEORAL [Suspect]
     Dosage: 150 MG, UNK
     Dates: start: 20130613, end: 20130711
  5. PROGRAF [Concomitant]
     Dosage: 7 MG, QD
  6. CERTICAN [Concomitant]
     Indication: IMMUNOSUPPRESSION
     Dosage: UNK
     Dates: start: 20130711
  7. CERTICAN [Concomitant]
     Dosage: 1.5 MG, UNK
     Dates: start: 20130705
  8. CERTICAN [Concomitant]
     Dosage: 2.5 MG, UNK
  9. SOLUPRED [Concomitant]
     Indication: IMMUNOSUPPRESSION
     Dosage: 10 MG, QD
     Dates: start: 20130618, end: 20130703
  10. SOLUPRED [Concomitant]
     Dosage: 5 MG, UNK
     Dates: start: 20130704, end: 20130725
  11. SOLUPRED [Concomitant]
     Dosage: 40 MG, UNK
     Dates: start: 20130726, end: 20130730
  12. SOLUPRED [Concomitant]
     Dosage: 30 MG, UNK
     Dates: start: 20130731, end: 20130806
  13. PROTON PUMP INHIBITORS [Concomitant]
  14. TRIMETHOPRIM SULFAMETHOXAZOLE [Concomitant]

REACTIONS (3)
  - Nephropathy toxic [Recovered/Resolved]
  - Renal failure acute [Not Recovered/Not Resolved]
  - Complications of transplanted kidney [Recovering/Resolving]
